FAERS Safety Report 6646070-1 (Version None)
Quarter: 2010Q1

REPORT INFORMATION
  Report Type: 
  Country: None (occurrence: None)
  Receive Date: 20100318
  Receipt Date: 20100305
  Transmission Date: 20100710
  Serious: Yes (Hospitalization)
  Sender: FDA-Public Use
  Company Number: 008623

PATIENT
  Sex: Male
  Weight: 46.3 kg

DRUGS (8)
  1. CERTOLIZUMAB PEGOL [Suspect]
     Indication: CROHN'S DISEASE
     Dosage: (400 MG 1X/MONTH SUBCUTANEOUS)
     Route: 058
     Dates: start: 20100224
  2. FAMOTIDINE [Concomitant]
  3. FLOVENT [Concomitant]
  4. MULTIVITAMIN /01229101/ [Concomitant]
  5. FLUORIDE /90006101/ [Concomitant]
  6. XOPENEX [Concomitant]
  7. FERROUS SULFATE TAB [Concomitant]
  8. FISH OIL [Concomitant]

REACTIONS (2)
  - BLOOD ALKALINE PHOSPHATASE INCREASED [None]
  - DEHYDRATION [None]
